FAERS Safety Report 9098173 (Version 2)
Quarter: 2013Q2

REPORT INFORMATION
  Report Type: Spontaneous
  Country: US (occurrence: US)
  Receive Date: 20130213
  Receipt Date: 20130403
  Transmission Date: 20140414
  Serious: Yes (Death, Other)
  Sender: FDA-Public Use
  Company Number: US-COVIDIEN/TYCO HEALTHCARE/MALLINCKRODT-T201204575

PATIENT
  Sex: Male

DRUGS (2)
  1. GABLOFEN [Suspect]
     Indication: MUSCLE SPASTICITY
     Dosage: 225.1 MCG/DAY
     Route: 037
  2. GABLOFEN [Suspect]
     Dosage: 235.1 MCG/DAY

REACTIONS (5)
  - Respiratory failure [Fatal]
  - Hypoxia [Fatal]
  - Neurogenic bladder [Unknown]
  - Dyspepsia [Unknown]
  - Pain [Unknown]
